FAERS Safety Report 5615218-X (Version None)
Quarter: 2008Q1

REPORT INFORMATION
  Report Type: 
  Country: None (occurrence: None)
  Receive Date: 20080205
  Receipt Date: 20080205
  Transmission Date: 20080703
  Serious: Yes (Hospitalization)
  Sender: FDA-Public Use
  Company Number: None

PATIENT
  Age: 59 Year
  Sex: Male
  Weight: 84.6 kg

DRUGS (1)
  1. TOPAMAX [Suspect]
     Indication: CONVULSION
     Dosage: 100MG  TID  PO
     Route: 048

REACTIONS (4)
  - CELLULITIS [None]
  - CONTUSION [None]
  - PSEUDOPORPHYRIA [None]
  - TOXIC EPIDERMAL NECROLYSIS [None]
